FAERS Safety Report 19739039 (Version 1)
Quarter: 2021Q3

REPORT INFORMATION
  Report Type: Spontaneous
  Country: US (occurrence: US)
  Receive Date: 20210823
  Receipt Date: 20210823
  Transmission Date: 20211014
  Serious: Yes (Hospitalization)
  Sender: FDA-Public Use
  Company Number: US-CELGENEUS-USA-20210804867

PATIENT
  Age: 84 Year
  Sex: Female

DRUGS (44)
  1. AZACITIDINE. [Suspect]
     Active Substance: AZACITIDINE
     Indication: ACUTE MYELOID LEUKAEMIA
     Dosage: 56.25 MILLIGRAM/SQ. METER
     Route: 041
     Dates: start: 20171127, end: 20180730
  2. NEURONTIN [Concomitant]
     Active Substance: GABAPENTIN
     Indication: PROPHYLAXIS
     Dosage: 900 MILLIGRAM
     Route: 048
     Dates: start: 20180103
  3. TYLENOL [Concomitant]
     Active Substance: ACETAMINOPHEN
     Indication: NECK PAIN
  4. COLACE [Concomitant]
     Active Substance: DOCUSATE SODIUM
     Indication: PROPHYLAXIS
     Dosage: 100 MG
     Route: 048
     Dates: start: 20180104
  5. SENNOSIDES. [Concomitant]
     Active Substance: SENNOSIDES
     Indication: CONSTIPATION
     Dosage: 8.6 MG
     Route: 048
     Dates: start: 20210523, end: 20210523
  6. POTASSIUM BICARBONATE  CITRIC ACID EFFERVESCENT TABLET [Concomitant]
     Indication: BLOOD POTASSIUM
     Dosage: 20 MILL EQUIVALENT
     Route: 048
     Dates: start: 20210523, end: 20210525
  7. POLYETHYLENE GLYCOL [Concomitant]
     Active Substance: POLYETHYLENE GLYCOLS
     Indication: CONSTIPATION
     Dosage: 17 GM
     Route: 048
     Dates: start: 20210523, end: 20210525
  8. PIPERACILLIN AND TAZOBACTAM [Concomitant]
     Active Substance: PIPERACILLIN SODIUM\TAZOBACTAM SODIUM
     Indication: DIVERTICULITIS
     Dosage: 3.375 GM
     Route: 041
     Dates: start: 20210523, end: 20210525
  9. ENOXAPARIN [Concomitant]
     Active Substance: ENOXAPARIN
     Indication: THROMBOSIS PROPHYLAXIS
     Dosage: 30 MILLIGRAM
     Route: 048
     Dates: start: 20210523, end: 20210525
  10. METANX [Concomitant]
     Active Substance: LEVOMEFOLATE CALCIUM\METHYLCOBALAMIN\PYRIDOXAL PHOSPHATE ANHYDROUS
     Indication: NEUROPATHY PERIPHERAL
     Route: 048
     Dates: start: 20190206
  11. SYNTHROID [Concomitant]
     Active Substance: LEVOTHYROXINE SODIUM
     Indication: HYPOTHYROIDISM
     Dosage: 75 MICROGRAM
     Route: 048
     Dates: start: 20171115
  12. IRON [Concomitant]
     Active Substance: IRON
     Indication: NUTRITIONAL SUPPLEMENTATION
     Dosage: 65 MILLIGRAM
     Route: 048
     Dates: start: 20190206
  13. ACETAMINOPHEN. [Concomitant]
     Active Substance: ACETAMINOPHEN
     Indication: PROPHYLAXIS
     Dosage: 1 AS REQUIRED
     Route: 048
     Dates: start: 20210525, end: 20210525
  14. CEFPODOXIME [Concomitant]
     Active Substance: CEFPODOXIME
     Indication: URINARY TRACT INFECTION
     Dosage: 800 MILLIGRAM
     Route: 048
     Dates: start: 20210525
  15. CEFPODOXIME [Concomitant]
     Active Substance: CEFPODOXIME
     Indication: DIVERTICULITIS
  16. POTASSIUM CHLORIDE. [Concomitant]
     Active Substance: POTASSIUM CHLORIDE
     Indication: PROPHYLAXIS
     Dosage: 40 MILLIEQUIVALENTS
     Route: 041
     Dates: start: 20180127
  17. TYLENOL [Concomitant]
     Active Substance: ACETAMINOPHEN
     Indication: ARTHRALGIA
  18. VANCOMYCIN [Concomitant]
     Active Substance: VANCOMYCIN
     Indication: URINARY TRACT INFECTION
  19. DOCUSATE SODIUM. [Concomitant]
     Active Substance: DOCUSATE SODIUM
     Indication: CONSTIPATION
     Dosage: 100 MG
     Route: 048
     Dates: start: 20210523, end: 20210524
  20. ACYCLOVIR. [Concomitant]
     Active Substance: ACYCLOVIR
     Indication: ANTIVIRAL PROPHYLAXIS
     Dosage: 1600 MILLIGRAM
     Route: 048
     Dates: start: 20171204
  21. ZOFRAN [Concomitant]
     Active Substance: ONDANSETRON HYDROCHLORIDE
     Indication: NAUSEA
     Dosage: 8 MILLIGRAM
     Route: 041
     Dates: start: 20180405
  22. ZOFRAN [Concomitant]
     Active Substance: ONDANSETRON HYDROCHLORIDE
     Indication: VOMITING
  23. PIPERACILLIN AND TAZOBACTAM [Concomitant]
     Active Substance: PIPERACILLIN SODIUM\TAZOBACTAM SODIUM
     Indication: URINARY TRACT INFECTION
  24. NORMAL SALIN [Concomitant]
     Indication: ELECTROLYTE IMBALANCE
     Dosage: 1000 MILLILITER
     Route: 041
     Dates: start: 20210523, end: 20210523
  25. PEGFILGRASTIM [Concomitant]
     Active Substance: PEGFILGRASTIM
     Indication: NEUTROPENIA
     Dosage: 6 MILLIGRAM
     Route: 058
     Dates: start: 20210608, end: 20210608
  26. LASIX [Concomitant]
     Active Substance: FUROSEMIDE
     Indication: HYPERTENSION
     Dosage: 20 MILLIGRAM
     Route: 041
     Dates: start: 20180129
  27. TYLENOL [Concomitant]
     Active Substance: ACETAMINOPHEN
     Indication: HEADACHE
     Dosage: 650 MILLIGRAM
     Route: 048
     Dates: start: 20180126
  28. COLACE [Concomitant]
     Active Substance: DOCUSATE SODIUM
     Indication: CONSTIPATION
  29. ACETAMINOPHEN. [Concomitant]
     Active Substance: ACETAMINOPHEN
     Indication: HEADACHE
  30. LACTATED RINGERS SOLUTION [Concomitant]
     Active Substance: CALCIUM CHLORIDE\POTASSIUM CHLORIDE\SODIUM CHLORIDE\SODIUM LACTATE
     Indication: ELECTROLYTE IMBALANCE
     Route: 041
     Dates: start: 20210524, end: 20210524
  31. ENOXAPARIN [Concomitant]
     Active Substance: ENOXAPARIN
     Indication: THROMBOSIS PROPHYLAXIS
  32. VENETOCLAX. [Suspect]
     Active Substance: VENETOCLAX
     Indication: ACUTE MYELOID LEUKAEMIA
     Route: 065
  33. AMIODARONE [Concomitant]
     Active Substance: AMIODARONE
     Indication: ARRHYTHMIA PROPHYLAXIS
     Dosage: 200 MILLIGRAM
     Route: 048
     Dates: start: 20181217
  34. METOPROLOL. [Concomitant]
     Active Substance: METOPROLOL
     Indication: HYPERTENSION
     Dosage: 25 MG
     Route: 048
     Dates: start: 20190911
  35. TYLENOL [Concomitant]
     Active Substance: ACETAMINOPHEN
     Indication: PROCTALGIA
  36. LEVOTHYROXINE. [Concomitant]
     Active Substance: LEVOTHYROXINE
     Indication: HYPOTHYROIDISM
     Route: 048
     Dates: start: 20210524, end: 20210525
  37. GABAPENTIN. [Concomitant]
     Active Substance: GABAPENTIN
     Indication: PERIPHERAL SENSORY NEUROPATHY
     Dosage: 600 MG
     Route: 048
     Dates: start: 20210523, end: 20210525
  38. AZACITIDINE. [Suspect]
     Active Substance: AZACITIDINE
     Dosage: 28.125 MILLIGRAM/SQ. METER
     Route: 041
     Dates: start: 20180929, end: 20210608
  39. ACYCLOVIR. [Concomitant]
     Active Substance: ACYCLOVIR
     Dosage: 1600 MILLIGRAM
     Route: 048
     Dates: start: 20210523, end: 20210525
  40. AMIODARONE [Concomitant]
     Active Substance: AMIODARONE
     Indication: ATRIAL FIBRILLATION
     Dosage: 200 MILLIGRAM
     Route: 048
     Dates: start: 20210523, end: 20210525
  41. LISINOPRIL. [Concomitant]
     Active Substance: LISINOPRIL
     Indication: HYPERTENSION
     Dosage: 20 MILLIGRAM
     Route: 048
     Dates: start: 20190814
  42. LISINOPRIL. [Concomitant]
     Active Substance: LISINOPRIL
     Dosage: 10 MILLIGRAM
     Route: 048
     Dates: start: 20210523, end: 20210525
  43. SENNA [Concomitant]
     Active Substance: SENNA LEAF\SENNOSIDES\SENNOSIDES A AND B
     Indication: CONSTIPATION
     Dosage: 1 AS REQUIRED
     Route: 048
     Dates: start: 20191216
  44. VANCOMYCIN [Concomitant]
     Active Substance: VANCOMYCIN
     Indication: DIVERTICULITIS
     Dosage: 1 ONCE
     Route: 041
     Dates: start: 20210523, end: 20210523

REACTIONS (1)
  - Hepatic cancer stage IV [Recovering/Resolving]

NARRATIVE: CASE EVENT DATE: 20210618
